FAERS Safety Report 7396560-1 (Version None)
Quarter: 2011Q1

REPORT INFORMATION
  Report Type: 
  Country: None (occurrence: None)
  Receive Date: 20110325
  Receipt Date: 20110310
  Transmission Date: 20110831
  Serious: No
  Sender: FDA-Public Use
  Company Number: SPI201100065

PATIENT
  Age: 58 Year
  Sex: Female
  Weight: 59 kg

DRUGS (3)
  1. KEFLEX [Suspect]
     Indication: INFECTION
     Dates: start: 20110301
  2. KEFLEX [Suspect]
     Indication: OROPHARYNGEAL PAIN
     Dates: start: 20110301
  3. AMITIZA [Suspect]
     Indication: CONSTIPATION
     Dosage: 24 MCG, BID, ORAL
     Route: 048

REACTIONS (7)
  - DRY MOUTH [None]
  - OROPHARYNGEAL PAIN [None]
  - CHEST DISCOMFORT [None]
  - PRURITUS GENERALISED [None]
  - DYSPHAGIA [None]
  - INFECTION [None]
  - PARAESTHESIA ORAL [None]
